FAERS Safety Report 7586120-1 (Version None)
Quarter: 2011Q2

REPORT INFORMATION
  Report Type: 
  Country: None (occurrence: None)
  Receive Date: 20110603
  Receipt Date: 20110502
  Transmission Date: 20111010
  Serious: No
  Sender: FDA-Public Use
  Company Number: 2011SP019960

PATIENT
  Age: 50 Year
  Sex: Female

DRUGS (6)
  1. CYMBALTA [Concomitant]
  2. KLONOPIN [Concomitant]
  3. SAPHRIS [Suspect]
     Indication: BIPOLAR DISORDER
     Dosage: 5 MG;BID;SL
     Route: 060
     Dates: start: 20110201
  4. LAMICTAL [Concomitant]
  5. TRAZODONE HCL [Concomitant]
  6. LYRICA [Concomitant]

REACTIONS (2)
  - DROOLING [None]
  - HYPOAESTHESIA ORAL [None]
